FAERS Safety Report 25738913 (Version 1)
Quarter: 2025Q3

REPORT INFORMATION
  Report Type: Report from Study
  Country: US (occurrence: US)
  Receive Date: 20250829
  Receipt Date: 20250829
  Transmission Date: 20251020
  Serious: No
  Sender: ACADIA PHARMACEUTICALS
  Company Number: US-ACADIA PHARMACEUTICALS INC.-ACA-2025-PIM-009579

PATIENT
  Sex: Male

DRUGS (10)
  1. NUPLAZID [Suspect]
     Active Substance: PIMAVANSERIN TARTRATE
     Indication: Parkinson^s disease
     Dosage: 34 MILLIGRAM, QD
     Route: 048
     Dates: start: 20240408
  2. ATORVASTATIN [Concomitant]
     Active Substance: ATORVASTATIN
  3. CARBIDOPA [Concomitant]
     Active Substance: CARBIDOPA
  4. CELLCEPT [Concomitant]
     Active Substance: MYCOPHENOLATE MOFETIL
  5. CLONIDINE [Concomitant]
     Active Substance: CLONIDINE
  6. DIFLUCAN [Concomitant]
     Active Substance: FLUCONAZOLE
  7. ENVARSUS XR [Concomitant]
     Active Substance: TACROLIMUS
  8. HYDROCORTISONE [Concomitant]
     Active Substance: HYDROCORTISONE
  9. PEPCID AC [Concomitant]
     Active Substance: FAMOTIDINE
  10. PROPRANOLOL [Concomitant]
     Active Substance: PROPRANOLOL HYDROCHLORIDE

REACTIONS (1)
  - Condition aggravated [Unknown]
